FAERS Safety Report 12154614 (Version 4)
Quarter: 2016Q2

REPORT INFORMATION
  Report Type: Report from Study
  Country: CH (occurrence: CH)
  Receive Date: 20160307
  Receipt Date: 20160412
  Transmission Date: 20160815
  Serious: Yes (Hospitalization, Other)
  Sender: FDA-Public Use
  Company Number: PHHY2015CH059151

PATIENT
  Sex: Female
  Weight: 54 kg

DRUGS (1)
  1. GILENYA [Suspect]
     Active Substance: FINGOLIMOD HYDROCHLORIDE
     Indication: RELAPSING-REMITTING MULTIPLE SCLEROSIS
     Dosage: 0.5 MG, QD
     Route: 065
     Dates: start: 201312, end: 20150530

REACTIONS (8)
  - Headache [Not Recovered/Not Resolved]
  - Headache [Recovered/Resolved]
  - Maternal exposure during pregnancy [Unknown]
  - Folate deficiency [Recovered/Resolved]
  - Streptococcal infection [Recovered/Resolved]
  - Amniorrhexis [Unknown]
  - Haemorrhage in pregnancy [Recovered/Resolved]
  - Depression [Not Recovered/Not Resolved]

NARRATIVE: CASE EVENT DATE: 20150713
